FAERS Safety Report 9385941 (Version 1)
Quarter: 2013Q3

REPORT INFORMATION
  Report Type: Report from Study
  Country: CN (occurrence: CN)
  Receive Date: 20130705
  Receipt Date: 20130710
  Transmission Date: 20140515
  Serious: Yes (Hospitalization)
  Sender: FDA-Public Use
  Company Number: CN-ASTRAZENECA-2013SE49355

PATIENT
  Age: 18810 Day
  Sex: Male

DRUGS (9)
  1. NEXIUM [Suspect]
     Indication: HAEMORRHAGE PROPHYLAXIS
     Dosage: 80 MG DURING THE WHOLE INFUSION PERIOD (LOADING DOSE)
     Route: 040
     Dates: start: 20130626, end: 20130626
  2. NEXIUM [Suspect]
     Indication: HAEMORRHAGE PROPHYLAXIS
     Dosage: 72 MG DURING THE WHOLE INFUSION PERIOD MAINTENANCE INFUSION
     Route: 040
     Dates: start: 20130626, end: 20130627
  3. NEXIUM [Suspect]
     Indication: HAEMORRHAGE PROPHYLAXIS
     Dosage: 16 MG DURING THE WHOLE INFUSION PERIOD MAINTENANCE INFUSION
     Route: 040
     Dates: start: 20130627, end: 20130627
  4. NEXIUM [Suspect]
     Indication: HAEMORRHAGE PROPHYLAXIS
     Dosage: 40 MG IVGTT Q8H
     Route: 042
  5. NEXIUM [Suspect]
     Indication: HAEMORRHAGE PROPHYLAXIS
     Route: 048
     Dates: start: 20130703, end: 20130703
  6. SOMATOSTATIN [Suspect]
     Dosage: 3.0 IVGTT Q12H
     Route: 042
  7. THROMBIN [Suspect]
     Dosage: 2 KU Q8H
     Route: 065
  8. SNAKE VENOM COMBINATION, COBRA AND NORTH AMERICAN VIPER [Suspect]
     Dosage: BOOSTER INJECTION OF COAGULATION 2 KU
     Route: 042
  9. NOREPINEPHRINE [Suspect]
     Route: 065

REACTIONS (1)
  - Duodenal ulcer haemorrhage [Recovered/Resolved with Sequelae]
